FAERS Safety Report 5197636-X (Version None)
Quarter: 2006Q4

REPORT INFORMATION
  Report Type: 
  Country: None (occurrence: None)
  Receive Date: 20061228
  Receipt Date: 20061212
  Transmission Date: 20070319
  Serious: Yes (Life-Threatening)
  Sender: FDA-Public Use
  Company Number: S06-FRA-05390-01

PATIENT
  Age: 91 Year
  Sex: Female

DRUGS (6)
  1. MEMANTINE HCL [Suspect]
     Indication: DEMENTIA
     Dosage: 1 TABLET QD; PO
     Route: 048
     Dates: start: 20060623, end: 20060821
  2. POTASSIUM CHLORIDE [Suspect]
     Dosage: 1 UNK QD; PO
     Route: 048
     Dates: start: 20060724, end: 20060821
  3. FORLAX (MACROGOL) [Suspect]
     Dosage: 1 UNK QD; PO
     Route: 048
     Dates: start: 20060629, end: 20060821
  4. SERORAM (CITALOPRAM HYDROBROMIDE) [Concomitant]
  5. DIGOXIN [Concomitant]
  6. SINTROM [Concomitant]

REACTIONS (3)
  - COMA [None]
  - CONFUSIONAL STATE [None]
  - RESPIRATORY DISORDER [None]
